FAERS Safety Report 23160389 (Version 1)
Quarter: 2023Q4

REPORT INFORMATION
  Report Type: Spontaneous
  Country: US (occurrence: None)
  Receive Date: 20231108
  Receipt Date: 20231108
  Transmission Date: 20240110
  Serious: Yes (Hospitalization)
  Sender: FDA-Public Use
  Company Number: None

PATIENT
  Age: 80 Year
  Sex: Male
  Weight: 93 kg

DRUGS (4)
  1. DARATUMUMAB [Suspect]
     Active Substance: DARATUMUMAB
     Dates: end: 20230712
  2. DEXAMETHASONE [Suspect]
     Active Substance: DEXAMETHASONE
     Dates: end: 20230720
  3. LENALIDOMIDE [Suspect]
     Active Substance: LENALIDOMIDE
     Dates: end: 20230722
  4. VELCADE [Suspect]
     Active Substance: BORTEZOMIB
     Dosage: OTHER QUANTITY : 2.9 MG;?
     Dates: end: 20230720

REACTIONS (17)
  - Scab [None]
  - Skin haemorrhage [None]
  - Skin exfoliation [None]
  - Foot deformity [None]
  - Arthralgia [None]
  - Joint swelling [None]
  - Soft tissue infection [None]
  - Exostosis [None]
  - Arthritis [None]
  - Osteomyelitis [None]
  - Skin ulcer [None]
  - Arterial stenosis [None]
  - Peripheral artery aneurysm [None]
  - Arterial occlusive disease [None]
  - Abscess [None]
  - Wound drainage [None]
  - Osteoarthritis [None]

NARRATIVE: CASE EVENT DATE: 20230723
